FAERS Safety Report 7016855-0 (Version None)
Quarter: 2010Q3

REPORT INFORMATION
  Report Type: 
  Country: None (occurrence: None)
  Receive Date: 20100927
  Receipt Date: 20100917
  Transmission Date: 20110219
  Serious: Yes (Other)
  Sender: FDA-Public Use
  Company Number: US-AMGEN-QUU439234

PATIENT
  Sex: Female

DRUGS (3)
  1. NPLATE [Suspect]
     Indication: IDIOPATHIC THROMBOCYTOPENIC PURPURA
     Dates: start: 20090702, end: 20100209
  2. CORTICOSTEROIDS [Concomitant]
     Dates: start: 20090716, end: 20090813
  3. IMMU-G [Concomitant]
     Dates: start: 20090616, end: 20090626

REACTIONS (3)
  - ANAEMIA [None]
  - BIOPSY BONE MARROW ABNORMAL [None]
  - NEUTROPHILIA [None]
